FAERS Safety Report 12839455 (Version 1)
Quarter: 2016Q4

REPORT INFORMATION
  Report Type: Spontaneous
  Country: US (occurrence: US)
  Receive Date: 20161012
  Receipt Date: 20161012
  Transmission Date: 20170207
  Serious: Yes (Hospitalization, Disabling, Other)
  Sender: FDA-Public Use
  Company Number: None

PATIENT
  Age: 46 Year
  Sex: Male
  Weight: 104.33 kg

DRUGS (10)
  1. INVEGA [Concomitant]
     Active Substance: PALIPERIDONE
  2. DEPAKOTE [Suspect]
     Active Substance: DIVALPROEX SODIUM
  3. LITHIUM LILLY [Suspect]
     Active Substance: LITHIUM
     Indication: PRODUCT USED FOR UNKNOWN INDICATION
     Dosage: ?          QUANTITY:\?W?QC;?
  4. ABILIFY [Suspect]
     Active Substance: ARIPIPRAZOLE
  5. COGENTIN [Suspect]
     Active Substance: BENZTROPINE MESYLATE
  6. ZYPREXA [Suspect]
     Active Substance: OLANZAPINE
  7. HALDOL [Suspect]
     Active Substance: HALOPERIDOL
  8. VALIUM [Suspect]
     Active Substance: DIAZEPAM
  9. WELLBUTRIN [Suspect]
     Active Substance: BUPROPION HYDROCHLORIDE
  10. LYRICA [Suspect]
     Active Substance: PREGABALIN

REACTIONS (4)
  - Overdose [None]
  - Aggression [None]
  - Multiple injuries [None]
  - Toxicity to various agents [None]

NARRATIVE: CASE EVENT DATE: 1980
